FAERS Safety Report 8318338-4 (Version None)
Quarter: 2012Q2

REPORT INFORMATION
  Report Type: 
  Country: None (occurrence: None)
  Receive Date: 20120427
  Receipt Date: 20090728
  Transmission Date: 20120825
  Serious: No
  Sender: FDA-Public Use
  Company Number: US-TEVA-2009009023

PATIENT
  Sex: Female
  Weight: 67.192 kg

DRUGS (5)
  1. NUVIGIL [Suspect]
     Indication: NARCOLEPSY
     Dosage: 150 MILLIGRAM;
     Route: 048
     Dates: start: 20090717, end: 20090724
  2. CYMBALTA [Concomitant]
     Indication: PAIN
  3. CYMBALTA [Concomitant]
     Indication: DEPRESSION
     Dosage: 30 MILLIGRAM;
     Route: 048
     Dates: start: 20090401
  4. HYDROCODONE [Concomitant]
     Indication: MUSCULOSKELETAL PAIN
     Route: 048
     Dates: start: 20090501
  5. MELOXICAM [Concomitant]
     Dosage: 15 MILLIGRAM;
     Route: 048
     Dates: start: 20090401

REACTIONS (1)
  - MANIA [None]
